FAERS Safety Report 10084222 (Version 3)
Quarter: 2014Q3

REPORT INFORMATION
  Report Type: Spontaneous
  Country: FR (occurrence: FR)
  Receive Date: 20140417
  Receipt Date: 20140804
  Transmission Date: 20150326
  Serious: Yes (Hospitalization)
  Sender: FDA-Public Use
  Company Number: FR-ROCHE-1379300

PATIENT
  Age: 38 Year
  Sex: Female

DRUGS (7)
  1. OFLOCET (FRANCE) [Suspect]
     Active Substance: OFLOXACIN
     Indication: PRODUCT USED FOR UNKNOWN INDICATION
     Route: 065
     Dates: end: 20140324
  2. TAXOTERE [Suspect]
     Active Substance: DOCETAXEL
     Indication: BREAST CANCER
     Dosage: 75MG/M2
     Route: 065
     Dates: start: 20131230, end: 20140414
  3. HERCEPTIN [Suspect]
     Active Substance: TRASTUZUMAB
     Indication: BREAST CANCER
     Dosage: ONE COURSE EVERY 3 WEEKS
     Route: 065
     Dates: start: 20131230, end: 20140414
  4. ZOPHREN [Concomitant]
     Active Substance: ONDANSETRON
     Route: 065
  5. CARBOPLATIN. [Suspect]
     Active Substance: CARBOPLATIN
     Indication: BREAST CANCER
     Route: 065
     Dates: start: 20131230, end: 20140414
  6. SOLU-MEDROL [Concomitant]
     Active Substance: METHYLPREDNISOLONE SODIUM SUCCINATE
     Dosage: BOLUS
     Route: 065
  7. TAMOXIFENE [Concomitant]
     Active Substance: TAMOXIFEN

REACTIONS (2)
  - Anaemia [Not Recovered/Not Resolved]
  - Haemolytic anaemia [Not Recovered/Not Resolved]

NARRATIVE: CASE EVENT DATE: 20140326
